FAERS Safety Report 23359243 (Version 3)
Quarter: 2024Q1

REPORT INFORMATION
  Report Type: Spontaneous
  Country: IL (occurrence: IL)
  Receive Date: 20240102
  Receipt Date: 20240131
  Transmission Date: 20240410
  Serious: No
  Sender: FDA-Public Use
  Company Number: IL-ALXN-A202312189

PATIENT
  Age: 17 Year
  Sex: Female
  Weight: 42 kg

DRUGS (4)
  1. SOLIRIS [Suspect]
     Active Substance: ECULIZUMAB
     Indication: C3 glomerulopathy
     Dosage: 1200 MILLIGRAM, Q2W
     Route: 065
     Dates: start: 20230914, end: 202312
  2. SOLIRIS [Suspect]
     Active Substance: ECULIZUMAB
     Indication: Glomerulonephritis membranoproliferative
  3. SOLIRIS [Suspect]
     Active Substance: ECULIZUMAB
     Indication: Intervertebral disc degeneration
  4. SOLIRIS [Suspect]
     Active Substance: ECULIZUMAB
     Indication: Off label use

REACTIONS (2)
  - Off label use [Unknown]
  - Drug ineffective [Unknown]

NARRATIVE: CASE EVENT DATE: 20230914
